FAERS Safety Report 23749695 (Version 1)
Quarter: 2024Q2

REPORT INFORMATION
  Report Type: Report from Study
  Country: US (occurrence: US)
  Receive Date: 20240416
  Receipt Date: 20240416
  Transmission Date: 20240716
  Serious: Yes (Other)
  Sender: FDA-Public Use
  Company Number: US-ABBVIE-5721593

PATIENT
  Sex: Female

DRUGS (1)
  1. HUMIRA [Suspect]
     Active Substance: ADALIMUMAB
     Indication: Crohn^s disease
     Dosage: FORM STRENGTH: 40MG?CF
     Route: 058
     Dates: start: 20191217

REACTIONS (9)
  - Loss of consciousness [Recovering/Resolving]
  - Asthenia [Unknown]
  - Headache [Recovering/Resolving]
  - Abdominal discomfort [Recovering/Resolving]
  - Arthritis [Unknown]
  - Therapeutic product effect incomplete [Unknown]
  - Joint lock [Unknown]
  - Fatigue [Unknown]
  - Inflammation [Recovering/Resolving]
